FAERS Safety Report 6881060-5 (Version None)
Quarter: 2010Q3

REPORT INFORMATION
  Report Type: 
  Country: None (occurrence: None)
  Receive Date: 20100727
  Receipt Date: 20100716
  Transmission Date: 20110219
  Serious: Yes (Other)
  Sender: FDA-Public Use
  Company Number: US-BIOGENIDEC-2010BI007348

PATIENT
  Age: 65 Year
  Sex: Female

DRUGS (1)
  1. AVONEX [Suspect]
     Indication: PRODUCT USED FOR UNKNOWN INDICATION
     Route: 030
     Dates: start: 20040101, end: 20100212

REACTIONS (4)
  - DEEP VEIN THROMBOSIS [None]
  - INJECTION SITE SCAR [None]
  - MENINGIOMA [None]
  - MOBILITY DECREASED [None]
